FAERS Safety Report 5303672-2 (Version None)
Quarter: 2007Q2

REPORT INFORMATION
  Report Type: 
  Country: None (occurrence: None)
  Receive Date: 20070420
  Receipt Date: 20070410
  Transmission Date: 20071010
  Serious: Yes (Congenital Anomaly, Other)
  Sender: FDA-Public Use
  Company Number: GB-PFIZER INC-2007006334

PATIENT
  Age: 86 Year
  Sex: Male

DRUGS (3)
  1. PIROXICAM [Suspect]
  2. ASPIRIN [Interacting]
  3. DIPYRIDAMOLE [Interacting]

REACTIONS (3)
  - DRUG INTERACTION [None]
  - EYE HAEMORRHAGE [None]
  - VITREOUS HAEMORRHAGE [None]
